FAERS Safety Report 9128176 (Version 1)
Quarter: 2013Q1

REPORT INFORMATION
  Report Type: Spontaneous
  Country: JP (occurrence: JP)
  Receive Date: 20130228
  Receipt Date: 20130228
  Transmission Date: 20140127
  Serious: Yes (Hospitalization)
  Sender: FDA-Public Use
  Company Number: JP-ASTELLAS-2013JP002702

PATIENT
  Age: 66 Year
  Sex: Female

DRUGS (2)
  1. BETANIS [Suspect]
     Route: 048
  2. MEDICATION FOR OSTEOPOROSIS [Concomitant]
     Indication: OSTEOPOROSIS
     Route: 048

REACTIONS (1)
  - Fracture [Unknown]
